FAERS Safety Report 15014731 (Version 1)
Quarter: 2018Q2

REPORT INFORMATION
  Report Type: Spontaneous
  Country: US (occurrence: US)
  Receive Date: 20180530
  Receipt Date: 20180530
  Transmission Date: 20180711
  Serious: Yes (Disabling, Other)
  Sender: FDA-Public Use
  Company Number: None

PATIENT
  Age: 57 Year
  Sex: Female
  Weight: 102.6 kg

DRUGS (7)
  1. VICTOZA [Suspect]
     Active Substance: LIRAGLUTIDE
     Indication: TYPE 2 DIABETES MELLITUS
     Dosage: ?          QUANTITY:1 INJECTION(S);?
     Route: 058
     Dates: start: 20180406, end: 20180530
  2. VITAMINS [Concomitant]
     Active Substance: VITAMINS
  3. GLIMEPIRIDE. [Concomitant]
     Active Substance: GLIMEPIRIDE
  4. ASPIRINS [Concomitant]
  5. VITAMIN D [Concomitant]
     Active Substance: CHOLECALCIFEROL
  6. CHOLESTEROL MEDICATION [Concomitant]
     Active Substance: UNSPECIFIED INGREDIENT
  7. TRIAMTERENE. [Concomitant]
     Active Substance: TRIAMTERENE

REACTIONS (4)
  - Pain in extremity [None]
  - Nasal congestion [None]
  - Burning sensation [None]
  - Constipation [None]

NARRATIVE: CASE EVENT DATE: 20180501
